FAERS Safety Report 17398173 (Version 1)
Quarter: 2020Q1

REPORT INFORMATION
  Report Type: Spontaneous
  Country: FR (occurrence: FR)
  Receive Date: 20200210
  Receipt Date: 20200210
  Transmission Date: 20200409
  Serious: Yes (Other)
  Sender: FDA-Public Use
  Company Number: FR-PFIZER INC-2020051429

PATIENT
  Age: 88 Year
  Sex: Male

DRUGS (2)
  1. CEFTRIAXONE SODIUM. [Suspect]
     Active Substance: CEFTRIAXONE SODIUM
     Indication: DERMO-HYPODERMITIS
     Dosage: 2 G, 1X/DAY
     Route: 042
     Dates: start: 20200104, end: 20200109
  2. CLINDAMYCIN HCL [Suspect]
     Active Substance: CLINDAMYCIN HYDROCHLORIDE
     Indication: DERMO-HYPODERMITIS
     Dosage: 1800 MG, 1X/DAY
     Route: 048
     Dates: start: 20200109, end: 20200113

REACTIONS (2)
  - Tongue discolouration [Not Recovered/Not Resolved]
  - Macroglossia [Not Recovered/Not Resolved]

NARRATIVE: CASE EVENT DATE: 20200110
